FAERS Safety Report 18077758 (Version 1)
Quarter: 2020Q3

REPORT INFORMATION
  Report Type: Spontaneous
  Country: US (occurrence: US)
  Receive Date: 20200727
  Receipt Date: 20200727
  Transmission Date: 20201103
  Serious: Yes (Hospitalization)
  Sender: FDA-Public Use
  Company Number: None

PATIENT
  Age: 55 Year
  Sex: Female

DRUGS (1)
  1. ACETAMINOPHEN ++ XS 500 MG CVS PHAMRACY HEALTHCARES [Suspect]
     Active Substance: ACETAMINOPHEN
     Indication: MYASTHENIA GRAVIS
     Route: 048
     Dates: start: 20200711

REACTIONS (2)
  - Condition aggravated [None]
  - Myasthenia gravis [None]

NARRATIVE: CASE EVENT DATE: 202007
